FAERS Safety Report 18208040 (Version 4)
Quarter: 2020Q4

REPORT INFORMATION
  Report Type: Report from Study
  Country: US (occurrence: US)
  Receive Date: 20200828
  Receipt Date: 20201120
  Transmission Date: 20210113
  Serious: Yes (Hospitalization, Other)
  Sender: FDA-Public Use
  Company Number: US-GLAXOSMITHKLINE-US2020AMR105092

PATIENT
  Age: 71 Year
  Sex: Female

DRUGS (7)
  1. NIRAPARIB [Suspect]
     Active Substance: NIRAPARIB
     Dosage: 200 MG, QD
  2. NIRAPARIB [Suspect]
     Active Substance: NIRAPARIB
     Dosage: 200 MG, QD
  3. NIRAPARIB [Suspect]
     Active Substance: NIRAPARIB
     Dosage: 200 MG, QD
     Dates: start: 20170918, end: 201901
  4. NIRAPARIB [Suspect]
     Active Substance: NIRAPARIB
     Dosage: 200 MG
     Dates: start: 201901, end: 201903
  5. NIRAPARIB [Suspect]
     Active Substance: NIRAPARIB
     Dosage: 200 MG, QD
     Route: 065
     Dates: start: 201904
  6. NIRAPARIB [Suspect]
     Active Substance: NIRAPARIB
     Indication: OVARIAN CANCER
     Dosage: 300 MG, QD
     Dates: start: 20170626
  7. NIRAPARIB [Suspect]
     Active Substance: NIRAPARIB
     Dosage: UNK (100MG ALT W/200MG)
     Dates: start: 201708, end: 20170905

REACTIONS (9)
  - Hospitalisation [Unknown]
  - Fatigue [Unknown]
  - Pulmonary mass [Unknown]
  - Biopsy lung abnormal [Unknown]
  - Renal surgery [Unknown]
  - Pneumothorax [Unknown]
  - Anaemia [Unknown]
  - Product use issue [Unknown]
  - White blood cell count decreased [Unknown]

NARRATIVE: CASE EVENT DATE: 202007
